FAERS Safety Report 9282698 (Version 2)
Quarter: 2013Q2

REPORT INFORMATION
  Report Type: Spontaneous
  Country: US (occurrence: None)
  Receive Date: 20101221
  Receipt Date: 20130419
  Transmission Date: 20140414
  Serious: No
  Sender: FDA-Public Use
  Company Number: 54973 SAE017

PATIENT
  Age: 39 Year
  Sex: Male

DRUGS (2)
  1. HYLAND^S LEG CRAMPS WITH QUININE [Suspect]
     Indication: MUSCLE SPASMS
     Dosage: 2  CAPLETS  TAKEN  ONCE
  2. HYLAND^S LEG CRAMPS WITH QUININE [Suspect]
     Dosage: 2  CAPLETS  TAKEN  ONCE

REACTIONS (2)
  - Back pain [None]
  - Abdominal pain upper [None]
